FAERS Safety Report 17975067 (Version 2)
Quarter: 2020Q3

REPORT INFORMATION
  Report Type: Spontaneous
  Country: US (occurrence: US)
  Receive Date: 20200702
  Receipt Date: 20200831
  Transmission Date: 20201103
  Serious: No
  Sender: FDA-Public Use
  Company Number: US-SA-2020SA170914

PATIENT

DRUGS (1)
  1. DUPIXENT [Suspect]
     Active Substance: DUPILUMAB
     Indication: DERMATITIS ATOPIC
     Dosage: 300 MG, OTHER
     Route: 058
     Dates: start: 202005

REACTIONS (7)
  - Eye pain [Unknown]
  - Balance disorder [Unknown]
  - Childhood asthma [Unknown]
  - Symptom recurrence [Unknown]
  - Chest discomfort [Unknown]
  - Dyspnoea [Unknown]
  - Eye discharge [Unknown]

NARRATIVE: CASE EVENT DATE: 20200530
